FAERS Safety Report 11782032 (Version 2)
Quarter: 2015Q4

REPORT INFORMATION
  Report Type: Spontaneous
  Country: US (occurrence: US)
  Receive Date: 20151126
  Receipt Date: 20151127
  Transmission Date: 20160305
  Serious: Yes (Other)
  Sender: FDA-Public Use
  Company Number: US-TEVA-612658ACC

PATIENT
  Age: 47 Year
  Sex: Female

DRUGS (1)
  1. PARAGARD T 380A [Suspect]
     Active Substance: COPPER
     Indication: CONTRACEPTION
     Route: 015
     Dates: end: 20151118

REACTIONS (4)
  - Device breakage [Not Recovered/Not Resolved]
  - Embedded device [Unknown]
  - Uterine perforation [Unknown]
  - Intentional product use issue [Unknown]
